FAERS Safety Report 21929012 (Version 5)
Quarter: 2023Q1

REPORT INFORMATION
  Report Type: Report from Study
  Country: FR (occurrence: FR)
  Receive Date: 20230131
  Receipt Date: 20230306
  Transmission Date: 20230417
  Serious: Yes (Life-Threatening)
  Sender: FDA-Public Use
  Company Number: FR-SA-SAC20230127001210

PATIENT
  Age: 62 Year
  Sex: Female
  Weight: 48 kg

DRUGS (12)
  1. ISATUXIMAB [Suspect]
     Active Substance: ISATUXIMAB
     Indication: Plasma cell myeloma
     Dosage: 520 MG
     Route: 042
     Dates: start: 20230125, end: 20230125
  2. ISATUXIMAB [Suspect]
     Active Substance: ISATUXIMAB
     Dosage: 520 MG
     Route: 042
     Dates: start: 20221221, end: 20221221
  3. ISATUXIMAB [Suspect]
     Active Substance: ISATUXIMAB
     Dosage: 520 MG
     Route: 042
     Dates: start: 20230208, end: 20230208
  4. CARFILZOMIB [Suspect]
     Active Substance: CARFILZOMIB
     Indication: Plasma cell myeloma
     Dosage: 90 MG
     Route: 042
     Dates: start: 20230125, end: 20230125
  5. CARFILZOMIB [Suspect]
     Active Substance: CARFILZOMIB
     Dosage: 32 MG
     Route: 042
     Dates: start: 20221221, end: 20221221
  6. CARFILZOMIB [Suspect]
     Active Substance: CARFILZOMIB
     Dosage: 84 MG
     Route: 042
     Dates: start: 20230208, end: 20230208
  7. LENALIDOMIDE [Suspect]
     Active Substance: LENALIDOMIDE
     Indication: Plasma cell myeloma
     Dosage: 25 MG
     Route: 048
     Dates: start: 20230104, end: 20230104
  8. LENALIDOMIDE [Suspect]
     Active Substance: LENALIDOMIDE
     Dosage: 25 MG
     Route: 048
     Dates: start: 20221221, end: 20221221
  9. LENALIDOMIDE [Suspect]
     Active Substance: LENALIDOMIDE
     Dosage: 25 MG
     Route: 048
     Dates: start: 20230208, end: 20230208
  10. DEXAMETHASONE [Suspect]
     Active Substance: DEXAMETHASONE
     Indication: Plasma cell myeloma
     Dosage: 40 MG
     Route: 048
     Dates: start: 20230125, end: 20230125
  11. DEXAMETHASONE [Suspect]
     Active Substance: DEXAMETHASONE
     Dosage: 40 MG
     Route: 048
     Dates: start: 20221221, end: 20221221
  12. DEXAMETHASONE [Suspect]
     Active Substance: DEXAMETHASONE
     Dosage: 40 MG
     Route: 048
     Dates: start: 20230208, end: 20230208

REACTIONS (2)
  - Septic shock [Recovered/Resolved]
  - Anaphylactic shock [Recovered/Resolved]

NARRATIVE: CASE EVENT DATE: 20230125
